FAERS Safety Report 6451982-8 (Version None)
Quarter: 2009Q4

REPORT INFORMATION
  Report Type: 
  Country: None (occurrence: None)
  Receive Date: 20091123
  Receipt Date: 20091021
  Transmission Date: 20100525
  Serious: No
  Sender: FDA-Public Use
  Company Number: US-BAYER-200915931BCC

PATIENT
  Age: 82 Year
  Sex: Female
  Weight: 93 kg

DRUGS (8)
  1. ALEVE [Suspect]
     Indication: BACK PAIN
     Dosage: CONSUMER STATED THAT SHE HAD BEEN TAKEN FOR MONTHS
     Route: 048
  2. ALEVE [Suspect]
     Dosage: TOTAL DAILY DOSE: 220 MG  UNIT DOSE: 220 MG
     Route: 048
  3. ALEVE [Suspect]
     Dosage: TOTAL DAILY DOSE: 220 MG  UNIT DOSE: 220 MG
     Route: 048
     Dates: start: 20091020
  4. PROTONIX [Concomitant]
     Route: 065
  5. CYTARABINE [Concomitant]
     Route: 065
  6. SERAX [Concomitant]
     Route: 065
  7. DARVOCET [Concomitant]
     Route: 065
  8. CENTRUM [Concomitant]
     Route: 065

REACTIONS (1)
  - CONSTIPATION [None]
